FAERS Safety Report 20600316 (Version 2)
Quarter: 2022Q2

REPORT INFORMATION
  Report Type: Report from Study
  Country: KR (occurrence: KR)
  Receive Date: 20220316
  Receipt Date: 20220622
  Transmission Date: 20220721
  Serious: Yes (Hospitalization)
  Sender: FDA-Public Use
  Company Number: KR-BRISTOL-MYERS SQUIBB COMPANY-BMS-2022-034987

PATIENT
  Age: 64 Year
  Sex: Male
  Weight: 57 kg

DRUGS (3)
  1. NIVOLUMAB [Suspect]
     Active Substance: NIVOLUMAB
     Indication: Gastrooesophageal cancer
     Dosage: 240 MILLIGRAM
     Route: 042
     Dates: start: 20220216, end: 20220216
  2. REGORAFENIB [Suspect]
     Active Substance: REGORAFENIB
     Indication: Gastrooesophageal cancer
     Dosage: 90 MILLIGRAM
     Route: 048
     Dates: start: 20220216, end: 20220302
  3. METHYLPREDNISOLONE SODIUM SUCCINATE [Concomitant]
     Active Substance: METHYLPREDNISOLONE SODIUM SUCCINATE
     Indication: Blood creatinine increased
     Route: 042
     Dates: start: 20220303

REACTIONS (2)
  - Blood creatinine increased [Recovering/Resolving]
  - Aspartate aminotransferase increased [Recovered/Resolved]

NARRATIVE: CASE EVENT DATE: 20220302
